FAERS Safety Report 20960086 (Version 1)
Quarter: 2022Q2

REPORT INFORMATION
  Report Type: Spontaneous
  Country: RO (occurrence: RO)
  Receive Date: 20220615
  Receipt Date: 20220615
  Transmission Date: 20220720
  Serious: Yes (Other)
  Sender: FDA-Public Use
  Company Number: RO-GLENMARK PHARMACEUTICALS-2022GMK072581

PATIENT
  Age: 39 Year
  Sex: Male

DRUGS (9)
  1. OLANZAPINE [Suspect]
     Active Substance: OLANZAPINE
     Indication: Schizoaffective disorder
     Dosage: 20 MILLIGRAM, ONCE A DAY
     Route: 065
  2. OLANZAPINE [Suspect]
     Active Substance: OLANZAPINE
     Dosage: 20 MILLIGRAM, ONCE A DAY (REINTRODUCED)
     Route: 065
  3. DIAZEPAM [Concomitant]
     Active Substance: DIAZEPAM
     Indication: Schizophrenia
     Dosage: 10 MILLIGRAM, ONCE A DAY
     Route: 065
  4. LORAZEPAM [Concomitant]
     Active Substance: LORAZEPAM
     Indication: Schizophrenia
     Dosage: 1 MILLIGRAM, ONCE A DAY
     Route: 065
  5. NITRAZEPAM [Concomitant]
     Active Substance: NITRAZEPAM
     Indication: Schizoaffective disorder
     Dosage: 2.5 MILLIGRAM, ONCE A DAY
     Route: 065
  6. RISPERIDONE [Concomitant]
     Active Substance: RISPERIDONE
     Indication: Depression
     Dosage: 4 MILLIGRAM, ONCE A DAY
     Route: 065
  7. VALPROIC ACID [Concomitant]
     Active Substance: VALPROIC ACID
     Indication: Schizoaffective disorder
     Dosage: 1000 MILLIGRAM, ONCE A DAY
     Route: 065
  8. VALPROIC ACID [Concomitant]
     Active Substance: VALPROIC ACID
     Dosage: 1500 MILLIGRAM, ONCE A DAY
     Route: 065
  9. VALPROIC ACID [Concomitant]
     Active Substance: VALPROIC ACID
     Dosage: 1000 MILLIGRAM, ONCE A DAY
     Route: 065

REACTIONS (2)
  - Drug ineffective [Unknown]
  - Schizophrenia [Recovering/Resolving]
